FAERS Safety Report 14544182 (Version 1)
Quarter: 2018Q1

REPORT INFORMATION
  Report Type: Spontaneous
  Country: US (occurrence: US)
  Receive Date: 20180215
  Receipt Date: 20180215
  Transmission Date: 20180509
  Serious: Yes (Hospitalization)
  Sender: FDA-Public Use
  Company Number: None

PATIENT
  Age: 85 Year
  Sex: Male

DRUGS (5)
  1. POT CHLORIDE SOL [Concomitant]
  2. CIPROFLOXACN [Concomitant]
     Active Substance: CIPROFLOXACIN
  3. ELIQUIS [Concomitant]
     Active Substance: APIXABAN
  4. POT CL [Concomitant]
  5. SENSIPAR [Suspect]
     Active Substance: CINACALCET HYDROCHLORIDE
     Indication: HYPERPARATHYROIDISM
     Route: 048
     Dates: start: 20171201

REACTIONS (1)
  - Atrial fibrillation [None]

NARRATIVE: CASE EVENT DATE: 20180208
